FAERS Safety Report 18637430 (Version 3)
Quarter: 2021Q1

REPORT INFORMATION
  Report Type: Spontaneous
  Country: JP (occurrence: JP)
  Receive Date: 20201218
  Receipt Date: 20210212
  Transmission Date: 20210419
  Serious: Yes (Death, Life-Threatening, Hospitalization, Other)
  Sender: FDA-Public Use
  Company Number: JP-ASTRAZENECA-2020SF68206

PATIENT
  Age: 76 Year
  Sex: Male

DRUGS (2)
  1. TAGRISSO [Suspect]
     Active Substance: OSIMERTINIB
     Indication: NON-SMALL CELL LUNG CANCER
     Route: 048
     Dates: start: 20201117, end: 20201128
  2. LIXIANA [Concomitant]
     Active Substance: EDOXABAN TOSYLATE
     Indication: MESENTERIC ARTERIAL OCCLUSION
     Dosage: NUMBER OF SEPARATE DOSAGES UNKNOWN30.0MG UNKNOWN
     Route: 065
     Dates: start: 202009, end: 20201202

REACTIONS (5)
  - Ventricular fibrillation [Not Recovered/Not Resolved]
  - Acute myocardial infarction [Fatal]
  - Hyperkalaemia [Unknown]
  - Electrocardiogram QT prolonged [Unknown]
  - Dehydration [Unknown]

NARRATIVE: CASE EVENT DATE: 2020
